FAERS Safety Report 24877404 (Version 1)
Quarter: 2025Q1

REPORT INFORMATION
  Report Type: Spontaneous
  Country: GB (occurrence: GB)
  Receive Date: 20250123
  Receipt Date: 20250123
  Transmission Date: 20250408
  Serious: Yes (Other)
  Sender: TEVA
  Company Number: GB-MHRA-EMIS-9683-1d9e8392-a2bf-46fc-9ef2-937415a8e395

PATIENT
  Age: 67 Year
  Sex: Female
  Weight: 56 kg

DRUGS (2)
  1. ATORVASTATIN [Suspect]
     Active Substance: ATORVASTATIN
     Indication: Product used for unknown indication
     Dosage: 1/2 TABLET TO BE TAKEN AT NIGHT FOR CHOLESTEROL. BLOOD TEST IN 3MONTHS, DURATION: 44 DAYS
     Route: 065
     Dates: start: 20241202, end: 20250115
  2. ROSUVASTATIN [Concomitant]
     Active Substance: ROSUVASTATIN
     Indication: Product used for unknown indication
     Dosage: ONE TO BE TAKEN EACH DAY - TO AID CHOLESTEROL
     Route: 065
     Dates: start: 20250115

REACTIONS (2)
  - Exfoliative rash [Not Recovered/Not Resolved]
  - Pruritus [Unknown]

NARRATIVE: CASE EVENT DATE: 20241223
